FAERS Safety Report 20945219 (Version 1)
Quarter: 2022Q2

REPORT INFORMATION
  Report Type: Spontaneous
  Country: FR (occurrence: FR)
  Receive Date: 20220610
  Receipt Date: 20220610
  Transmission Date: 20220721
  Serious: Yes (Other)
  Sender: FDA-Public Use
  Company Number: FR-BAUSCH-BL-2022-014264

PATIENT
  Age: 71 Year
  Sex: Female

DRUGS (2)
  1. ACETYLCHOLINE CHLORIDE [Suspect]
     Active Substance: ACETYLCHOLINE CHLORIDE
     Indication: Miosis
     Dosage: POWDER AND SOLVENT FOR INTRA-OCULAR SOLUTION (INTRACAMERAL INJECTION)
     Route: 047
  2. MIOSTAT [Suspect]
     Active Substance: CARBACHOL
     Indication: Miosis
     Dosage: INJECTION
     Route: 047

REACTIONS (1)
  - Anterior chamber fibrin [Unknown]
